FAERS Safety Report 8322453-9 (Version None)
Quarter: 2012Q2

REPORT INFORMATION
  Report Type: 
  Country: None (occurrence: None)
  Receive Date: 20120426
  Receipt Date: 20120411
  Transmission Date: 20120825
  Serious: Yes (Hospitalization)
  Sender: FDA-Public Use
  Company Number: JPI-P-020889

PATIENT
  Age: 14 Year
  Sex: Male

DRUGS (6)
  1. LISDEXAMFETAMINE DIMESYLATE [Concomitant]
  2. XYREM [Suspect]
     Indication: CATAPLEXY
     Dosage: (UNKNOWN), ORAL 9 GM (4.5 GM, 2 IN 1 D), ORAL
     Route: 048
     Dates: start: 20110719
  3. LEVOCETIRIZINE DIHYDROCHLORIDE [Concomitant]
  4. METHYLPHENIDATE HCL [Suspect]
     Indication: ENERGY INCREASED
     Dosage: (5 MG), ORAL
     Route: 048
     Dates: start: 20120326, end: 20120326
  5. VENLAFAXINE HYDROCHLORIDE [Suspect]
     Indication: CATAPLEXY
     Dosage: (37.5 MG), ORAL (37.5 MG), ORAL
     Route: 048
     Dates: start: 20120329
  6. VENLAFAXINE HYDROCHLORIDE [Suspect]
     Indication: CATAPLEXY
     Dosage: (37.5 MG), ORAL (37.5 MG), ORAL
     Route: 048
     Dates: end: 20120326

REACTIONS (8)
  - SUICIDAL IDEATION [None]
  - SWELLING [None]
  - AGGRESSION [None]
  - CATAPLEXY [None]
  - NERVOUSNESS [None]
  - DISEASE RECURRENCE [None]
  - HYPERSENSITIVITY [None]
  - PRURITUS [None]
